FAERS Safety Report 7354574-1 (Version None)
Quarter: 2011Q1

REPORT INFORMATION
  Report Type: 
  Country: None (occurrence: None)
  Receive Date: 20110316
  Receipt Date: 20110307
  Transmission Date: 20110831
  Serious: Yes (Hospitalization, Other)
  Sender: FDA-Public Use
  Company Number: US-ELI_LILLY_AND_COMPANY-US201103002374

PATIENT
  Sex: Female

DRUGS (3)
  1. FORTEO [Suspect]
     Indication: OSTEOPOROSIS
     Dosage: 20 UG, DAILY (1/D)
  2. FORTEO [Suspect]
     Dosage: 20 UG, DAILY (1/D)
  3. CALCIUM [Concomitant]

REACTIONS (9)
  - DRUG INEFFECTIVE [None]
  - HIATUS HERNIA [None]
  - DYSPHAGIA [None]
  - URINARY TRACT INFECTION [None]
  - DYSSTASIA [None]
  - ABDOMINAL DISCOMFORT [None]
  - PYREXIA [None]
  - KYPHOSIS [None]
  - POST PROCEDURAL CONSTIPATION [None]
